FAERS Safety Report 8479879-2 (Version None)
Quarter: 2012Q2

REPORT INFORMATION
  Report Type: 
  Country: None (occurrence: None)
  Receive Date: 20120629
  Receipt Date: 20120618
  Transmission Date: 20120825
  Serious: Yes (Hospitalization)
  Sender: FDA-Public Use
  Company Number: US-MYLANLABS-2012S1012385

PATIENT
  Age: 58 Year
  Sex: Male

DRUGS (16)
  1. HYDRALAZINE HYDROCHLORIDE [Concomitant]
     Route: 065
  2. POTASSIUM CHLORIDE [Concomitant]
     Route: 065
  3. ASPIRIN [Concomitant]
     Dosage: 81 MG/DAY
     Route: 065
  4. WARFARIN SODIUM [Concomitant]
     Dosage: 5 MG/DAY
     Route: 065
  5. CARVEDILOL [Suspect]
     Dosage: 6.25 MG/DAY
     Route: 065
  6. LISINOPRIL [Concomitant]
     Dosage: 20 MG/DAY
     Route: 065
  7. TORSEMIDE [Concomitant]
     Dosage: 20 MG/DAY
     Route: 065
  8. DRONEDARONE HCL [Interacting]
     Indication: ATRIAL FIBRILLATION
     Route: 048
  9. ISOSORBIDE MONONITRATE [Concomitant]
     Dosage: 30 MG/DAY
     Route: 065
  10. PAROXETINE HCL [Concomitant]
     Dosage: 20 MG/DAY
     Route: 065
  11. ALLOPURINOL [Concomitant]
     Dosage: 300 MG/DAY
     Route: 065
  12. RETINOL [Concomitant]
     Dosage: DAILY
     Route: 065
  13. LEVOTHYROXINE SODIUM [Concomitant]
     Dosage: 50 MCG/DAY
     Route: 065
  14. GUAIFENESIN [Concomitant]
     Dosage: 400 MG/DAY
     Route: 065
  15. OXYBUTYNIN [Concomitant]
     Route: 065
  16. LOVASTATIN [Concomitant]
     Dosage: 40 MG/DAY
     Route: 065

REACTIONS (5)
  - BRADYCARDIA [None]
  - LOSS OF CONSCIOUSNESS [None]
  - ELECTROCARDIOGRAM QT PROLONGED [None]
  - DRUG INTERACTION [None]
  - SYNCOPE [None]
